FAERS Safety Report 7479577-8 (Version None)
Quarter: 2011Q2

REPORT INFORMATION
  Report Type: 
  Country: None (occurrence: None)
  Receive Date: 20110513
  Receipt Date: 20110509
  Transmission Date: 20111010
  Serious: Yes (Death)
  Sender: FDA-Public Use
  Company Number: NZ-CELGENEUS-118-20785-11020191

PATIENT
  Sex: Female
  Weight: 53 kg

DRUGS (1)
  1. THALIDOMIDE [Suspect]
     Indication: MULTIPLE MYELOMA
     Dosage: 100 MILLIGRAM
     Route: 048
     Dates: start: 20100420, end: 20101123

REACTIONS (2)
  - MULTIPLE MYELOMA [None]
  - NO THERAPEUTIC RESPONSE [None]
